FAERS Safety Report 9363653 (Version 1)
Quarter: 2013Q1

REPORT INFORMATION
  Report Type: Spontaneous
  Country: US (occurrence: None)
  Receive Date: 20130305
  Receipt Date: 20130305
  Transmission Date: 20140127
  Serious: Yes (Death, Hospitalization, Other)
  Sender: FDA-Public Use
  Company Number: AUR-APL-2013-01943

PATIENT
  Age: 96 Year
  Sex: Female
  Weight: 61.22 kg

DRUGS (5)
  1. LISINOPRIL (LISINOPRIL) [Suspect]
     Indication: DIURETIC THERAPY
  2. REVATIO [Suspect]
     Indication: PULMONARY HYPERTENSION
     Dates: start: 201111
  3. LASIX (FUROSEMIDE) [Suspect]
     Indication: DIURETIC THERAPY
     Dates: start: 200706, end: 2011
  4. COUMADIN (WARFARIN SODIUM) [Suspect]
     Indication: PRODUCT USED FOR UNKNOWN INDICATION
  5. ASPIRIN [Suspect]
     Indication: PRODUCT USED FOR UNKNOWN INDICATION

REACTIONS (7)
  - Renal failure chronic [None]
  - Haemorrhage [None]
  - Urinary tract infection [None]
  - Anaemia [None]
  - Pulmonary hypertension [None]
  - Renal failure [None]
  - Right ventricular failure [None]
